FAERS Safety Report 11984511 (Version 2)
Quarter: 2016Q1

REPORT INFORMATION
  Report Type: Spontaneous
  Country: US (occurrence: US)
  Receive Date: 20160201
  Receipt Date: 20160309
  Transmission Date: 20160526
  Serious: Yes (Other)
  Sender: FDA-Public Use
  Company Number: PHHY2016US008765

PATIENT
  Age: 55 Year
  Sex: Male

DRUGS (1)
  1. CYCLOBENZAPRINE [Suspect]
     Active Substance: CYCLOBENZAPRINE
     Indication: MUSCLE SPASMS
     Dosage: 10 MG, QD
     Route: 065

REACTIONS (3)
  - Quality of life decreased [Recovered/Resolved]
  - Painful ejaculation [Recovered/Resolved]
  - Sexual dysfunction [Recovered/Resolved]
